FAERS Safety Report 22073011 (Version 1)
Quarter: 2023Q1

REPORT INFORMATION
  Report Type: Spontaneous
  Country: US (occurrence: US)
  Receive Date: 20230308
  Receipt Date: 20230308
  Transmission Date: 20230418
  Serious: No
  Sender: FDA-Public Use
  Company Number: US-AMGEN-USASP2023036883

PATIENT
  Age: 37 Year
  Sex: Female

DRUGS (6)
  1. REPATHA [Suspect]
     Active Substance: EVOLOCUMAB
     Indication: Product used for unknown indication
     Route: 065
  2. REPATHA [Suspect]
     Active Substance: EVOLOCUMAB
     Route: 065
  3. CONTACT [Concomitant]
     Indication: Product used for unknown indication
     Route: 065
  4. RANITIDINE HYDROCHLORIDE [Concomitant]
     Active Substance: RANITIDINE HYDROCHLORIDE
     Indication: Product used for unknown indication
     Route: 065
  5. LIQUID [Concomitant]
     Active Substance: TROLAMINE SALICYLATE
     Indication: Product used for unknown indication
     Route: 065
  6. ORANGE [Concomitant]
     Active Substance: ORANGE
     Indication: Product used for unknown indication
     Route: 050

REACTIONS (9)
  - Drug dose omission by device [Unknown]
  - Accidental exposure to product [Unknown]
  - Device difficult to use [Unknown]
  - Device difficult to use [Unknown]
  - Product dispensing error [Unknown]
  - Incorrect dose administered [Unknown]
  - Needle issue [Unknown]
  - Wrong technique in product usage process [Unknown]
  - Device issue [Unknown]

NARRATIVE: CASE EVENT DATE: 20230210
